FAERS Safety Report 4802851-8 (Version None)
Quarter: 2005Q4

REPORT INFORMATION
  Report Type: 
  Country: None (occurrence: None)
  Receive Date: 20051019
  Receipt Date: 20051010
  Transmission Date: 20060501
  Serious: Yes (Other)
  Sender: FDA-Public Use
  Company Number: US-KINGPHARMUSA00001-K200501336

PATIENT
  Age: 35 Year
  Sex: Female

DRUGS (2)
  1. ALTACE [Suspect]
     Indication: HYPERTENSION
     Dosage: 1 U, UNK
     Route: 048
     Dates: start: 20050922, end: 20050922
  2. FELODIPIN DURA RETARDTABLETTEN [Suspect]
     Indication: HYPERTENSION
     Dosage: 1 U, UNK
     Route: 048
     Dates: start: 20050922, end: 20050922

REACTIONS (3)
  - HEADACHE [None]
  - MUSCULOSKELETAL STIFFNESS [None]
  - RASH [None]
